FAERS Safety Report 8032102-5 (Version None)
Quarter: 2012Q1

REPORT INFORMATION
  Report Type: 
  Country: None (occurrence: None)
  Receive Date: 20120109
  Receipt Date: 20111230
  Transmission Date: 20120608
  Serious: Yes (Other)
  Sender: FDA-Public Use
  Company Number: NO-ASTRAZENECA-2012SE00153

PATIENT
  Age: 84 Year
  Sex: Male

DRUGS (8)
  1. POVIDONE IODINE [Suspect]
     Indication: PREOPERATIVE CARE
     Route: 047
  2. PHENYLEPHRINE HCL [Suspect]
     Indication: PREOPERATIVE CARE
     Route: 031
  3. CEFUROXIME [Suspect]
     Indication: ANTIBIOTIC PROPHYLAXIS
     Route: 031
  4. LIDOCAINE [Suspect]
     Indication: ANAESTHESIA
     Route: 031
  5. PHENYLEPHRINE HCL [Suspect]
     Route: 061
  6. CYCLOPENTOLATE HCL [Suspect]
     Indication: PREOPERATIVE CARE
     Route: 061
  7. DEXAMETHASONE [Suspect]
     Route: 061
  8. DEXAMETHASONE [Suspect]
     Indication: PREOPERATIVE CARE
     Route: 061

REACTIONS (1)
  - ENDOPHTHALMITIS [None]
